FAERS Safety Report 7085855-7 (Version None)
Quarter: 2010Q4

REPORT INFORMATION
  Report Type: 
  Country: None (occurrence: None)
  Receive Date: 20101007
  Receipt Date: 20100611
  Transmission Date: 20110411
  Serious: No
  Sender: FDA-Public Use
  Company Number: 2010IP000068

PATIENT
  Age: 47 Year
  Sex: Female

DRUGS (2)
  1. BEPREVE [Suspect]
     Indication: EYE PRURITUS
     Dosage: 1 GTT; PRN; OPH
     Route: 047
     Dates: start: 20100401, end: 20100501
  2. CLONAZEPAM [Concomitant]

REACTIONS (5)
  - DIZZINESS [None]
  - DYSPHAGIA [None]
  - DYSPNOEA [None]
  - HEART RATE INCREASED [None]
  - POLLAKIURIA [None]
